FAERS Safety Report 16652673 (Version 1)
Quarter: 2019Q3

REPORT INFORMATION
  Report Type: Spontaneous
  Country: IN (occurrence: IN)
  Receive Date: 20190731
  Receipt Date: 20190731
  Transmission Date: 20191004
  Serious: Yes (Life-Threatening, Hospitalization, Other)
  Sender: FDA-Public Use
  Company Number: IN-PFIZER INC-2019325345

PATIENT
  Age: 7 Year
  Sex: Male

DRUGS (11)
  1. ETOPOSIDE. [Suspect]
     Active Substance: ETOPOSIDE
     Indication: METASTASES TO BONE
     Dosage: UNK, CYCLIC (4 CYCLES)
  2. THIOTEPA. [Suspect]
     Active Substance: THIOTEPA
     Indication: METASTASES TO BONE
     Dosage: 300 MG/M2, CYCLIC (HIGH DOSE CHEMOTHERAPY D-5 TO D-3)
  3. VINCRISTINE [Suspect]
     Active Substance: VINCRISTINE
     Indication: METASTASES TO BONE
     Dosage: UNK, CYCLIC (4 CYCLES )
     Dates: start: 2013
  4. CARBOPLATIN. [Suspect]
     Active Substance: CARBOPLATIN
     Indication: METASTASES TO BONE
     Dosage: 500 MG/M2, CYCLIC (HIGH DOSE CHEMOTHERAPY  D-8 TO D-6)
  5. MAGNESIUM [Concomitant]
     Active Substance: MAGNESIUM
     Indication: RENAL TUBULAR DISORDER
     Dosage: UNK
  6. GRANULOCYTE COLONY STIMULATING FACTOR [Concomitant]
     Active Substance: GRANULOCYTE COLONY-STIMULATING FACTOR NOS
     Dosage: 10 UG/KG, 1X/DAY
  7. POTASSIUM CHLORIDE. [Concomitant]
     Active Substance: POTASSIUM CHLORIDE
     Indication: RENAL TUBULAR DISORDER
     Dosage: UNK
  8. CALCIUM [Concomitant]
     Active Substance: CALCIUM
     Indication: RENAL TUBULAR DISORDER
     Dosage: UNK
  9. CISPLATIN. [Suspect]
     Active Substance: CISPLATIN
     Indication: METASTASES TO BONE
     Dosage: UNK, CYCLIC (4 CYCLES)
     Dates: start: 2013
  10. ETOPOSIDE. [Suspect]
     Active Substance: ETOPOSIDE
     Dosage: 250 MG/M2, CYCLIC (HIGH DOSE CHEMOTHERAPY D-5 TO D-3)
  11. CYCLOPHOSPHAMIDE. [Suspect]
     Active Substance: CYCLOPHOSPHAMIDE
     Indication: METASTASES TO BONE
     Dosage: UNK, CYCLIC (4 CYCLES)
     Dates: start: 2013

REACTIONS (8)
  - Hypocalcaemia [Recovered/Resolved]
  - Hyponatraemia [Recovered/Resolved]
  - Electrolyte imbalance [Recovered/Resolved]
  - Hypomagnesaemia [Recovered/Resolved]
  - Hypokalaemia [Recovered/Resolved]
  - Cardiac arrest [Recovered/Resolved]
  - Bone marrow failure [Unknown]
  - Status epilepticus [Recovered/Resolved]
